FAERS Safety Report 21027060 (Version 2)
Quarter: 2022Q3

REPORT INFORMATION
  Report Type: Spontaneous
  Country: US (occurrence: US)
  Receive Date: 20220630
  Receipt Date: 20220726
  Transmission Date: 20221026
  Serious: No
  Sender: FDA-Public Use
  Company Number: US-UNITED THERAPEUTICS-UNT-2022-011177

PATIENT
  Sex: Female

DRUGS (5)
  1. TYVASO [Suspect]
     Active Substance: TREPROSTINIL
     Indication: Pulmonary arterial hypertension
     Dosage: UNK
     Dates: start: 20220506
  2. TYVASO [Suspect]
     Active Substance: TREPROSTINIL
     Dosage: 30 ?G, QID
     Dates: start: 202205, end: 202205
  3. TYVASO [Suspect]
     Active Substance: TREPROSTINIL
     Dosage: 42 ?G, QID
     Dates: start: 202205
  4. TYVASO [Suspect]
     Active Substance: TREPROSTINIL
     Dosage: 54 ?G, QID
     Dates: start: 2022, end: 2022
  5. TYVASO [Suspect]
     Active Substance: TREPROSTINIL
     Dosage: 48 ?G, QID
     Dates: start: 2022

REACTIONS (18)
  - Localised oedema [Unknown]
  - Oedema [Unknown]
  - Chest pain [Unknown]
  - Increased viscosity of bronchial secretion [Unknown]
  - Irritability [Unknown]
  - Fatigue [Unknown]
  - Oedema peripheral [Unknown]
  - Orthopnoea [Unknown]
  - Productive cough [Unknown]
  - Throat irritation [Unknown]
  - Dizziness [Unknown]
  - Headache [Recovering/Resolving]
  - Oropharyngeal pain [Unknown]
  - Chest discomfort [Unknown]
  - Flushing [Unknown]
  - Dizziness postural [Unknown]
  - Drug titration error [Unknown]
  - Wrong technique in product usage process [Unknown]

NARRATIVE: CASE EVENT DATE: 20220101
